FAERS Safety Report 9687047 (Version 3)
Quarter: 2014Q1

REPORT INFORMATION
  Report Type: Spontaneous
  Country: DE (occurrence: DE)
  Receive Date: 20131113
  Receipt Date: 20140228
  Transmission Date: 20141002
  Serious: Yes (Other)
  Sender: FDA-Public Use
  Company Number: DE-BAYER-2013-135434

PATIENT
  Age: 30 Year
  Sex: Female
  Weight: 70 kg

DRUGS (1)
  1. QLAIRA FILMTABLETTEN [Suspect]
     Indication: ORAL CONTRACEPTION
     Dosage: 1 DF, QD
     Route: 048
     Dates: start: 201308, end: 201310

REACTIONS (13)
  - Hypertensive crisis [Recovered/Resolved]
  - Hypertension [Recovered/Resolved]
  - Palpitations [Recovered/Resolved]
  - Sinus tachycardia [Recovered/Resolved]
  - Dyspnoea [None]
  - Vertigo [Recovering/Resolving]
  - Panic attack [Not Recovered/Not Resolved]
  - Hypoaesthesia [Recovering/Resolving]
  - Paraesthesia [Recovering/Resolving]
  - Blood cholesterol increased [Unknown]
  - Blood triglycerides increased [Unknown]
  - Cervicobrachial syndrome [Unknown]
  - Migraine [Unknown]
